FAERS Safety Report 26132808 (Version 1)
Quarter: 2025Q4

REPORT INFORMATION
  Report Type: Spontaneous
  Country: CA (occurrence: CA)
  Receive Date: 20251208
  Receipt Date: 20251208
  Transmission Date: 20260118
  Serious: Yes (Other)
  Sender: BAXTER
  Company Number: CA-BAXTER-2025BAX025406

PATIENT
  Age: 1 Day

DRUGS (1)
  1. DEXTROSE [Suspect]
     Active Substance: DEXTROSE MONOHYDRATE
     Dosage: D10W, PERIPHERAL IV
     Route: 042

REACTIONS (2)
  - Haemorrhage neonatal [Unknown]
  - Device leakage [Unknown]

NARRATIVE: CASE EVENT DATE: 20251027
